FAERS Safety Report 23914061 (Version 1)
Quarter: 2024Q2

REPORT INFORMATION
  Report Type: Spontaneous
  Country: US (occurrence: US)
  Receive Date: 20240529
  Receipt Date: 20240529
  Transmission Date: 20240715
  Serious: Yes (Hospitalization)
  Sender: FDA-Public Use
  Company Number: US-AMNEAL PHARMACEUTICALS-2024-AMRX-01867

PATIENT
  Sex: Male
  Weight: 11.791 kg

DRUGS (2)
  1. VIGABATRIN [Suspect]
     Active Substance: VIGABATRIN
     Indication: Product used for unknown indication
     Dosage: 750 MG, 2X/DAY
     Route: 048
     Dates: start: 20240126
  2. KEPPRA [Concomitant]
     Active Substance: LEVETIRACETAM
     Indication: Product used for unknown indication
     Dosage: UNK
     Route: 065

REACTIONS (1)
  - Hospitalisation [Unknown]
